FAERS Safety Report 6311843-1 (Version None)
Quarter: 2009Q3

REPORT INFORMATION
  Report Type: 
  Country: None (occurrence: None)
  Receive Date: 20090817
  Receipt Date: 20090811
  Transmission Date: 20100115
  Serious: Yes (Other)
  Sender: FDA-Public Use
  Company Number: US-ABBOTT-09P-163-0590332-00

PATIENT
  Sex: Male
  Weight: 118.04 kg

DRUGS (1)
  1. ZEMPLAR [Suspect]
     Indication: RENAL DISORDER
     Dates: start: 20090601

REACTIONS (1)
  - PROSTATE CANCER [None]
